FAERS Safety Report 7735404-2 (Version None)
Quarter: 2011Q3

REPORT INFORMATION
  Report Type: 
  Country: None (occurrence: None)
  Receive Date: 20110907
  Receipt Date: 20110829
  Transmission Date: 20111222
  Serious: Yes (Hospitalization, Other)
  Sender: FDA-Public Use
  Company Number: US-B.I. PHARMACEUTICALS,INC./RIDGEFIELD-2011-BP-17772BP

PATIENT
  Age: 83 Year
  Sex: Female

DRUGS (7)
  1. PLAQUENIL [Concomitant]
     Dosage: 400 MG
  2. DILANTIN [Concomitant]
     Dosage: 300 MG
  3. ASPIRIN [Concomitant]
     Dosage: 81 MG
  4. LOPRESSOR [Concomitant]
     Dosage: 25 MG
  5. HYDROCHLOROTHIAZIDE [Concomitant]
     Dosage: 25 MG
  6. CELEBREX [Concomitant]
     Dosage: 200 MG
  7. PRADAXA [Suspect]
     Indication: ATRIAL FIBRILLATION
     Dosage: 300 MG
     Route: 048
     Dates: start: 20110201, end: 20110405

REACTIONS (1)
  - EMBOLIC CEREBRAL INFARCTION [None]
